FAERS Safety Report 15132151 (Version 1)
Quarter: 2018Q4

REPORT INFORMATION
  Report Type: Report from Study
  Country: US (occurrence: US)
  Receive Date: 20180711
  Receipt Date: 20180711
  Transmission Date: 20190204
  Serious: No
  Sender: FDA-Public Use
  Company Number: US-CEDIPROF, INC.-2051818

PATIENT
  Sex: Female

DRUGS (1)
  1. LEVO-T [Suspect]
     Active Substance: LEVOTHYROXINE SODIUM
     Indication: PRODUCT USED FOR UNKNOWN INDICATION
     Route: 048
     Dates: start: 1969, end: 2009

REACTIONS (5)
  - Burning sensation [None]
  - Feeling hot [Unknown]
  - Thyrotoxic crisis [Recovering/Resolving]
  - Incorrect dose administered [Not Recovered/Not Resolved]
  - Malaise [Not Recovered/Not Resolved]
